FAERS Safety Report 9817468 (Version 1)
Quarter: 2014Q1

REPORT INFORMATION
  Report Type: Spontaneous
  Country: US (occurrence: US)
  Receive Date: 20140115
  Receipt Date: 20140115
  Transmission Date: 20141002
  Serious: No
  Sender: FDA-Public Use
  Company Number: US-BIOGENIDEC-2014BI003374

PATIENT
  Age: 62 Year
  Sex: Female

DRUGS (1)
  1. AVONEX [Suspect]
     Indication: MULTIPLE SCLEROSIS
     Route: 030
     Dates: start: 20040604

REACTIONS (10)
  - Mobility decreased [Recovered/Resolved]
  - Dysstasia [Recovered/Resolved]
  - Arthropathy [Recovered/Resolved]
  - Sensory disturbance [Recovered/Resolved]
  - Bladder disorder [Recovered/Resolved]
  - Joint swelling [Recovered/Resolved]
  - Drug administered at inappropriate site [Recovered/Resolved]
  - Ankle fracture [Recovered/Resolved]
  - Pain in extremity [Recovered/Resolved]
  - Pain [Recovered/Resolved]
